FAERS Safety Report 22707834 (Version 2)
Quarter: 2023Q4

REPORT INFORMATION
  Report Type: Report from Study
  Country: CA (occurrence: CA)
  Receive Date: 20230714
  Receipt Date: 20231127
  Transmission Date: 20240110
  Serious: Yes (Other)
  Sender: FDA-Public Use
  Company Number: CA-TAKEDA-2023TUS068774

PATIENT
  Age: 56 Year
  Sex: Female

DRUGS (12)
  1. VEDOLIZUMAB [Suspect]
     Active Substance: VEDOLIZUMAB
     Indication: Crohn^s disease
     Dosage: 300 MILLIGRAM
     Route: 042
  2. VEDOLIZUMAB [Suspect]
     Active Substance: VEDOLIZUMAB
     Indication: Crohn^s disease
     Dosage: 108 MILLIGRAM
     Route: 058
  3. METHOTREXATE SODIUM [Suspect]
     Active Substance: METHOTREXATE SODIUM
     Indication: Product used for unknown indication
     Dosage: UNK
     Route: 065
  4. BENADRYL [Concomitant]
     Active Substance: DIPHENHYDRAMINE HYDROCHLORIDE
     Indication: Premedication
     Dosage: UNK
  5. CANDESARTAN [Concomitant]
     Active Substance: CANDESARTAN
     Dosage: 4 MILLIGRAM
  6. CHOLESTYRAMINE [Concomitant]
     Active Substance: CHOLESTYRAMINE
     Dosage: 4 GRAM
  7. DIMETHYL SULFOXIDE [Concomitant]
     Active Substance: DIMETHYL SULFOXIDE
     Dosage: 200 MILLIGRAM
  8. OMEPRAZOLE [Concomitant]
     Active Substance: OMEPRAZOLE
     Dosage: 20 MILLIGRAM
  9. HYDROCHLOROTHIAZIDE [Concomitant]
     Active Substance: HYDROCHLOROTHIAZIDE
     Dosage: 250 MILLIGRAM
  10. HYDROCORTISONE [Concomitant]
     Active Substance: HYDROCORTISONE
     Indication: Premedication
     Dosage: UNK
  11. MESALAMINE [Concomitant]
     Active Substance: MESALAMINE
     Dosage: 4 GRAM, QD
  12. METHIMAZOLE [Concomitant]
     Active Substance: METHIMAZOLE
     Dosage: 7.5 MILLIGRAM

REACTIONS (43)
  - Abdominal distension [Recovered/Resolved]
  - Abdominal pain [Recovered/Resolved]
  - Arthralgia [Recovered/Resolved]
  - Blood pressure increased [Recovered/Resolved]
  - Cough [Recovered/Resolved]
  - Dehydration [Recovered/Resolved]
  - Diabetes mellitus [Recovered/Resolved]
  - Diarrhoea [Recovered/Resolved]
  - Dyspnoea [Recovered/Resolved]
  - Ear congestion [Recovered/Resolved]
  - Fatigue [Recovered/Resolved]
  - Fluid retention [Recovered/Resolved]
  - Gastrointestinal inflammation [Recovered/Resolved]
  - Gastrooesophageal reflux disease [Recovered/Resolved]
  - Headache [Recovered/Resolved]
  - Hepatic enzyme increased [Recovered/Resolved]
  - Hepatic steatosis [Recovered/Resolved]
  - Hot flush [Recovered/Resolved]
  - Hyperhidrosis [Recovered/Resolved]
  - Hyperlipidaemia [Recovered/Resolved]
  - Influenza [Recovered/Resolved]
  - Limb discomfort [Recovered/Resolved]
  - Liver function test increased [Recovered/Resolved]
  - Nasal congestion [Recovered/Resolved]
  - Nausea [Recovered/Resolved]
  - Oedema peripheral [Recovered/Resolved]
  - Osteopenia [Recovered/Resolved]
  - Pain [Recovered/Resolved]
  - Palpitations [Recovered/Resolved]
  - Peripheral swelling [Recovered/Resolved]
  - Pyrexia [Recovered/Resolved]
  - Renal impairment [Recovered/Resolved]
  - Swelling face [Recovered/Resolved]
  - White blood cell count increased [Recovered/Resolved]
  - Drug ineffective [Recovered/Resolved]
  - Tinnitus [Recovered/Resolved]
  - Anxiety [Recovered/Resolved]
  - Injection site extravasation [Recovered/Resolved]
  - Influenza like illness [Recovered/Resolved]
  - Neutrophil count increased [Recovered/Resolved]
  - Proctalgia [Recovered/Resolved]
  - Incorrect dose administered [Recovered/Resolved]
  - Blood pressure decreased [Recovered/Resolved]
